FAERS Safety Report 11216366 (Version 1)
Quarter: 2015Q2

REPORT INFORMATION
  Report Type: Spontaneous
  Country: US (occurrence: US)
  Receive Date: 20150624
  Receipt Date: 20150624
  Transmission Date: 20150821
  Serious: Yes (Hospitalization)
  Sender: FDA-Public Use
  Company Number: US-ASTRAZENECA-2007BM02764

PATIENT
  Age: 72 Year
  Sex: Male
  Weight: 124.7 kg

DRUGS (4)
  1. BYETTA [Suspect]
     Active Substance: EXENATIDE
     Indication: TYPE 2 DIABETES MELLITUS
     Route: 058
     Dates: start: 200611, end: 20061231
  2. BYDUREON [Suspect]
     Active Substance: EXENATIDE
     Indication: DIABETIC NEUROPATHY
     Route: 058
  3. ASA [Concomitant]
     Active Substance: ASPIRIN
  4. BYETTA [Suspect]
     Active Substance: EXENATIDE
     Indication: TYPE 2 DIABETES MELLITUS
     Route: 058
     Dates: start: 20070101

REACTIONS (5)
  - Injection site haemorrhage [Recovered/Resolved]
  - Diabetic neuropathy [Unknown]
  - Hyperlipidaemia [Unknown]
  - Thyroiditis chronic [Unknown]
  - Radiculopathy [Unknown]

NARRATIVE: CASE EVENT DATE: 20070116
